FAERS Safety Report 7231918-2 (Version None)
Quarter: 2011Q1

REPORT INFORMATION
  Report Type: 
  Country: None (occurrence: None)
  Receive Date: 20110118
  Receipt Date: 20110112
  Transmission Date: 20110831
  Serious: Yes (Other)
  Sender: FDA-Public Use
  Company Number: US-PFIZER INC-2011008454

PATIENT
  Sex: Female
  Weight: 56.689 kg

DRUGS (3)
  1. TIMOLOL [Suspect]
     Indication: OSTEOPENIA
     Dosage: UNK
     Dates: start: 20070601
  2. NEURONTIN [Suspect]
     Indication: OSTEOPENIA
     Dosage: UNK
     Route: 048
     Dates: start: 20060601
  3. VICODIN [Suspect]
     Indication: OSTEOPENIA
     Dosage: UNK
     Dates: start: 20070601

REACTIONS (2)
  - OSTEOPENIA [None]
  - UTERINE DISORDER [None]
